FAERS Safety Report 7314089-3 (Version None)
Quarter: 2011Q1

REPORT INFORMATION
  Report Type: 
  Country: None (occurrence: None)
  Receive Date: 20110225
  Receipt Date: 20100429
  Transmission Date: 20110831
  Serious: No
  Sender: FDA-Public Use
  Company Number: US-MYLANLABS-2010S1007476

PATIENT
  Age: 42 Year
  Sex: Female

DRUGS (2)
  1. AMNESTEEM [Suspect]
     Indication: ACNE
     Route: 048
     Dates: start: 20100301, end: 20100414
  2. CLARAVIS [Suspect]
     Indication: ACNE
     Route: 048
     Dates: start: 20100415, end: 20100401

REACTIONS (1)
  - ANXIETY [None]
